FAERS Safety Report 5738488-6 (Version None)
Quarter: 2008Q2

REPORT INFORMATION
  Report Type: 
  Country: None (occurrence: None)
  Receive Date: 20080513
  Receipt Date: 20080502
  Transmission Date: 20081010
  Serious: Yes (Other)
  Sender: FDA-Public Use
  Company Number: DSA_31058_2007

PATIENT
  Sex: Female

DRUGS (7)
  1. CARDIZEM CD [Suspect]
     Indication: HYPERTENSION
     Dosage: (180 MG QD ORAL)
     Route: 048
     Dates: start: 19930101, end: 20080201
  2. ATENOL [Concomitant]
  3. HYDROCHLOROTHIAZIDE [Concomitant]
  4. TRAZODONE HCL [Concomitant]
  5. PAXIL [Concomitant]
  6. AMBIEN [Concomitant]
  7. LORCET-HD [Concomitant]

REACTIONS (29)
  - ABDOMINAL PAIN LOWER [None]
  - BLOOD CHOLESTEROL INCREASED [None]
  - BLOOD TRIGLYCERIDES INCREASED [None]
  - CARDIOMEGALY [None]
  - CAROTID BRUIT [None]
  - CARPAL TUNNEL SYNDROME [None]
  - CHEST PAIN [None]
  - CONSTIPATION [None]
  - CONVULSION [None]
  - DYSPEPSIA [None]
  - ELECTROCARDIOGRAM T WAVE ABNORMAL [None]
  - FATIGUE [None]
  - FUNGAL INFECTION [None]
  - GENERAL PHYSICAL HEALTH DETERIORATION [None]
  - GINGIVAL HYPERPLASIA [None]
  - GINGIVAL HYPERTROPHY [None]
  - GINGIVAL INFECTION [None]
  - GINGIVAL SWELLING [None]
  - HERPES SIMPLEX [None]
  - INSOMNIA [None]
  - MENORRHAGIA [None]
  - MICTURITION DISORDER [None]
  - NERVOUSNESS [None]
  - PAIN IN EXTREMITY [None]
  - PALPITATIONS [None]
  - PERIODONTAL DISEASE [None]
  - PERIODONTITIS [None]
  - RESPIRATION ABNORMAL [None]
  - UTERINE LEIOMYOMA [None]
